FAERS Safety Report 17400781 (Version 1)
Quarter: 2020Q1

REPORT INFORMATION
  Report Type: Spontaneous
  Country: US (occurrence: US)
  Receive Date: 20200211
  Receipt Date: 20200211
  Transmission Date: 20200409
  Serious: No
  Sender: FDA-Public Use
  Company Number: US-BAUSCH-BL-2020-002392

PATIENT
  Age: 54 Year
  Sex: Female

DRUGS (1)
  1. ARESTIN [Suspect]
     Active Substance: MINOCYCLINE HYDROCHLORIDE
     Indication: TOOTH DISORDER
     Dosage: 1 AMPULE OF ARESTIN IN ONE 5MM POCKET
     Route: 004
     Dates: start: 20200122, end: 20200122

REACTIONS (5)
  - Lymphadenopathy [Unknown]
  - Vertigo [Unknown]
  - Bone pain [Unknown]
  - Dizziness [Unknown]
  - Drug hypersensitivity [Unknown]

NARRATIVE: CASE EVENT DATE: 202001
